FAERS Safety Report 9456649 (Version 1)
Quarter: 2013Q3

REPORT INFORMATION
  Report Type: Spontaneous
  Country: IT (occurrence: IT)
  Receive Date: 20130813
  Receipt Date: 20130813
  Transmission Date: 20140515
  Serious: Yes (Other)
  Sender: FDA-Public Use
  Company Number: IT-TEVA-423066ISR

PATIENT
  Age: 81 Year
  Sex: Female

DRUGS (5)
  1. PACLITAXEL TEVA [Suspect]
     Indication: BREAST CANCER STAGE IV
     Route: 042
     Dates: start: 20130628, end: 20130719
  2. ATARAX 25 MG [Concomitant]
     Dosage: 25 MILLIGRAM DAILY;
     Route: 048
     Dates: start: 20130628, end: 20130719
  3. ZANTAC [Concomitant]
     Dosage: 50 MILLIGRAM DAILY;
     Route: 042
     Dates: start: 20130628, end: 20130719
  4. PLASIL [Concomitant]
     Dosage: 20 MILLIGRAM DAILY;
     Route: 042
     Dates: start: 20130628, end: 20130719
  5. DESAMETASONE FOSFATO HOSPIRA [Concomitant]
     Dosage: 16 MILLIGRAM DAILY;
     Route: 042
     Dates: start: 20130628, end: 20130719

REACTIONS (2)
  - Loss of consciousness [Recovered/Resolved]
  - Trismus [Recovered/Resolved]
